FAERS Safety Report 4325891-4 (Version None)
Quarter: 2004Q1

REPORT INFORMATION
  Report Type: 
  Country: None (occurrence: None)
  Receive Date: 20040324
  Receipt Date: 20040310
  Transmission Date: 20041129
  Serious: Yes (Hospitalization)
  Sender: FDA-Public Use
  Company Number: 2003-BP-10692BP(1)

PATIENT
  Age: 67 Year
  Sex: Female

DRUGS (7)
  1. COMBIVENT INHALER AROSOL (CONBIVENT/GFR/) [Suspect]
     Indication: CHRONIC OBSTRUCTIVE AIRWAYS DISEASE
     Dosage: 12 PUF (SEE TEXT, 2 PUFFS EVERY 4 HOURS), IH
     Route: 055
     Dates: start: 19990101
  2. ALBUTEROL NEBULIZER (SALBUTAMOL) [Concomitant]
  3. NORVASC [Concomitant]
  4. SINGULAIR [Concomitant]
  5. XANAX [Concomitant]
  6. ZOCOR [Concomitant]
  7. DEXAMETHASONE [Concomitant]

REACTIONS (4)
  - DRUG EFFECT DECREASED [None]
  - FALL [None]
  - HIP FRACTURE [None]
  - PHARMACEUTICAL PRODUCT COMPLAINT [None]
